FAERS Safety Report 5287682-X (Version None)
Quarter: 2007Q1

REPORT INFORMATION
  Report Type: 
  Country: None (occurrence: None)
  Receive Date: 20070105
  Receipt Date: 20061016
  Transmission Date: 20070707
  Serious: Yes (Hospitalization)
  Sender: FDA-Public Use
  Company Number: US-JNJFOC-20061003979

PATIENT
  Age: 74 Year
  Sex: Female
  Weight: 72.5755 kg

DRUGS (3)
  1. ULTRAM ER [Suspect]
     Indication: MUSCULOSKELETAL PAIN
     Dosage: 200 MG, 1 IN 1 DAY, ORAL
     Route: 048
     Dates: start: 20060917, end: 20060917
  2. LASIX [Concomitant]
  3. DILTIAZEM [Concomitant]

REACTIONS (4)
  - SWELLING [None]
  - SWOLLEN TONGUE [None]
  - TREMOR [None]
  - VOMITING [None]
